FAERS Safety Report 10392596 (Version 1)
Quarter: 2014Q3

REPORT INFORMATION
  Report Type: Spontaneous
  Country: US (occurrence: None)
  Receive Date: 20140815
  Receipt Date: 20140815
  Transmission Date: 20150326
  Serious: Yes (Other)
  Sender: FDA-Public Use
  Company Number: AUR-APL-2014-08687

PATIENT
  Age: 78 Year
  Sex: Female
  Weight: 62.1 kg

DRUGS (20)
  1. ROBITUSSIN (GUAIFENESIN) [Suspect]
     Active Substance: GUAIFENESIN
     Indication: PRODUCT USED FOR UNKNOWN INDICATION
     Dosage: UNKNOWN
  2. ROBITUSSIN (GUAIFENESIN) [Suspect]
     Active Substance: GUAIFENESIN
     Indication: NASAL CONGESTION
     Dosage: UNKNOWN
     Route: 048
     Dates: start: 20140422, end: 20140422
  3. ATORVASTATIN CALCIUM. [Concomitant]
     Active Substance: ATORVASTATIN CALCIUM
  4. BIOPLASMA FDP (PLASMA PROTEIN FRACTION (HUMAN) [Concomitant]
  5. XANAX [Concomitant]
     Active Substance: ALPRAZOLAM
  6. LIPITOR [Concomitant]
     Active Substance: ATORVASTATIN CALCIUM
  7. MIRALAX (MACROGOL) [Concomitant]
  8. METOPROLOL (METOPROLOL) UNKNOWN, UNKNOWN [Suspect]
     Active Substance: METOPROLOL
     Indication: PRODUCT USED FOR UNKNOWN INDICATION
  9. ROBITUSSIN (GUAIFENESIN) [Suspect]
     Active Substance: GUAIFENESIN
     Indication: COUGH
     Dosage: UNKNOWN
     Route: 048
     Dates: start: 20140422, end: 20140422
  10. XARELTO [Concomitant]
     Active Substance: RIVAROXABAN
  11. FUROSEMIDE (FUROSEMIDE) [Suspect]
     Active Substance: FUROSEMIDE
     Indication: PRODUCT USED FOR UNKNOWN INDICATION
     Dosage: UKNOWN
  12. NORVASC [Concomitant]
     Active Substance: AMLODIPINE BESYLATE
  13. ATENOLOL. [Concomitant]
     Active Substance: ATENOLOL
  14. ASPIRIN (ACETYLSALICYLIC ACID) [Concomitant]
     Active Substance: ASPIRIN
  15. TENORMIN [Concomitant]
     Active Substance: ATENOLOL
  16. CALCIUM 600 PLUS VITAMIN D3 [Concomitant]
  17. SYNTHROID [Concomitant]
     Active Substance: LEVOTHYROXINE SODIUM
  18. VITAMIN D3 [Concomitant]
     Active Substance: CHOLECALCIFEROL
  19. PENLAC (CICLOPIROX) [Concomitant]
  20. CYANOCOBALAMIN. [Concomitant]
     Active Substance: CYANOCOBALAMIN

REACTIONS (10)
  - Loss of consciousness [None]
  - Nausea [None]
  - Ejection fraction abnormal [None]
  - Asthenia [None]
  - Drug hypersensitivity [None]
  - Vomiting [None]
  - Anxiety [None]
  - Idiosyncratic drug reaction [None]
  - Drug interaction [None]
  - Nervousness [None]

NARRATIVE: CASE EVENT DATE: 20140422
